FAERS Safety Report 4808336-7 (Version None)
Quarter: 2005Q4

REPORT INFORMATION
  Report Type: 
  Country: None (occurrence: None)
  Receive Date: 20051025
  Receipt Date: 20050815
  Transmission Date: 20060501
  Serious: Yes (Disabling, Other)
  Sender: FDA-Public Use
  Company Number: 2005GB01600

PATIENT
  Age: 27019 Day
  Sex: Female
  Weight: 58 kg

DRUGS (2)
  1. GEFITINIB [Suspect]
     Indication: NON-SMALL CELL LUNG CANCER
     Route: 048
     Dates: start: 20050617, end: 20050629
  2. RADIOTHERAPY [Concomitant]
     Dates: start: 20050311

REACTIONS (3)
  - CONJUNCTIVAL ULCER [None]
  - MUCOSAL ULCERATION [None]
  - TRACHEAL OEDEMA [None]
